FAERS Safety Report 7868053-6 (Version None)
Quarter: 2011Q4

REPORT INFORMATION
  Report Type: 
  Country: None (occurrence: None)
  Receive Date: 20111028
  Receipt Date: 20111024
  Transmission Date: 20120403
  Serious: Yes (Hospitalization, Other)
  Sender: FDA-Public Use
  Company Number: DE-TEVA-306248GER

PATIENT
  Sex: Female
  Weight: 58 kg

DRUGS (6)
  1. GRANISETRON [Concomitant]
     Indication: BREAST CANCER
     Route: 042
  2. CLEMASTINE FUMARATE [Concomitant]
     Indication: BREAST CANCER
     Route: 042
  3. CYCLOPHOSPHAMIDE [Suspect]
     Indication: BREAST CANCER
  4. DOCETAXEL [Suspect]
     Indication: BREAST CANCER
     Dates: start: 20110624, end: 20110916
  5. EPIRUBICIN [Suspect]
     Indication: BREAST CANCER
  6. DEXAMETHASONE [Concomitant]
     Indication: BREAST CANCER
     Route: 042

REACTIONS (4)
  - WEIGHT INCREASED [None]
  - BONE PAIN [None]
  - ALOPECIA [None]
  - ASTHENIA [None]
